FAERS Safety Report 15061278 (Version 1)
Quarter: 2018Q2

REPORT INFORMATION
  Report Type: Spontaneous
  Country: US (occurrence: US)
  Receive Date: 20180625
  Receipt Date: 20180625
  Transmission Date: 20180711
  Serious: Yes (Other)
  Sender: FDA-Public Use
  Company Number: US-ASTRAZENECA-2018SE81136

PATIENT

DRUGS (3)
  1. BRILINTA [Suspect]
     Active Substance: TICAGRELOR
     Route: 048
  2. BRILINTA [Suspect]
     Active Substance: TICAGRELOR
     Route: 048
  3. ASPIRIN. [Concomitant]
     Active Substance: ASPIRIN

REACTIONS (5)
  - Dyspepsia [Unknown]
  - Intentional product misuse [Unknown]
  - Abdominal pain [Unknown]
  - Myocardial infarction [Unknown]
  - Dyspnoea [Unknown]
